FAERS Safety Report 6661306-9 (Version None)
Quarter: 2010Q1

REPORT INFORMATION
  Report Type: 
  Country: None (occurrence: None)
  Receive Date: 20100331
  Receipt Date: 20100316
  Transmission Date: 20100710
  Serious: Yes (Hospitalization)
  Sender: FDA-Public Use
  Company Number: NL-MEDIMMUNE-MEDI-0010795

PATIENT
  Sex: Female
  Weight: 12 kg

DRUGS (8)
  1. SYNAGIS [Suspect]
     Route: 030
     Dates: start: 20100111, end: 20100209
  2. SYNAGIS [Suspect]
     Route: 030
     Dates: start: 20100309, end: 20100309
  3. POTASSIUM CHLORIDE [Concomitant]
  4. FUROSEMIDE [Concomitant]
  5. SPIRONOLACTONE [Concomitant]
  6. HYDROCHLOROTHIAZIDE [Concomitant]
  7. DOMPERIDONE [Concomitant]
  8. CARBASALATE CALCIUM [Concomitant]

REACTIONS (1)
  - ROTAVIRUS INFECTION [None]
